FAERS Safety Report 9218177 (Version 2)
Quarter: 2013Q2

REPORT INFORMATION
  Report Type: Spontaneous
  Country: DE (occurrence: DE)
  Receive Date: 20130408
  Receipt Date: 20130503
  Transmission Date: 20140414
  Serious: Yes (Other)
  Sender: FDA-Public Use
  Company Number: GXKR2013DE001390

PATIENT
  Sex: Female
  Weight: 53 kg

DRUGS (1)
  1. PAROXAT [Suspect]
     Indication: DEPRESSION
     Dosage: 20 MG, UNK
     Route: 048
     Dates: start: 200908

REACTIONS (2)
  - Macular hole [Unknown]
  - Visual impairment [Unknown]
